FAERS Safety Report 4578197-2 (Version None)
Quarter: 2005Q1

REPORT INFORMATION
  Report Type: 
  Country: None (occurrence: None)
  Receive Date: 20050211
  Receipt Date: 20050202
  Transmission Date: 20050727
  Serious: Yes (Disabling)
  Sender: FDA-Public Use
  Company Number: PHNU2005DE00777

PATIENT
  Sex: Male

DRUGS (22)
  1. CLOZARIL [Suspect]
     Indication: SCHIZOPHRENIA
     Route: 048
     Dates: start: 19890101, end: 20011001
  2. CLOZARIL [Suspect]
     Dosage: 25 TO 225 MG
     Route: 048
     Dates: start: 20030626, end: 20030704
  3. CLOZARIL [Suspect]
     Dosage: 25 TO 300 MG
     Route: 048
     Dates: start: 20030724, end: 20030812
  4. CLOZARIL [Suspect]
     Dosage: 350 TO 400 MG
     Route: 048
     Dates: start: 20030813, end: 20030825
  5. CLOZARIL [Suspect]
     Dosage: UNK, UNK
     Dates: start: 20030826
  6. CLOZARIL [Suspect]
     Dosage: UP TO 550 MG/DAY
     Dates: start: 20030101, end: 20030625
  7. CLOZARIL [Suspect]
     Dosage: UP TO 550 MG/DAY
     Dates: start: 20030101, end: 20030625
  8. CLOZARIL [Suspect]
     Dosage: UP TO 550 MG/DAY
     Dates: start: 20030101, end: 20030625
  9. CLOZARIL [Suspect]
     Dosage: UP TO 550 MG/DAY
     Dates: start: 20030101, end: 20030625
  10. TRUXAL [Suspect]
     Dates: start: 20030614, end: 20030701
  11. TRUXAL [Suspect]
     Dates: end: 20030820
  12. TRUXAL [Suspect]
     Dates: start: 20030821, end: 20030829
  13. TRUXAL [Suspect]
     Dates: start: 20030830, end: 20030903
  14. DIPIPERON [Concomitant]
     Dates: start: 20030904, end: 20030907
  15. DIPIPERON [Concomitant]
     Dates: start: 20030908, end: 20031010
  16. DIPIPERON [Concomitant]
     Dates: start: 20031011
  17. RISPERDAL [Concomitant]
     Dosage: TO 4 MG
     Dates: end: 20030701
  18. RISPERDAL [Concomitant]
     Dosage: TO 6 MG
     Dates: start: 20030702, end: 20030727
  19. RISPERDAL [Concomitant]
     Dates: start: 20030728, end: 20030805
  20. GLUCOPHAGE [Concomitant]
  21. PRAVASIN [Concomitant]
     Dates: start: 20030814, end: 20030826
  22. SEROQUEL [Concomitant]

REACTIONS (12)
  - ALANINE AMINOTRANSFERASE INCREASED [None]
  - DRUG INTERACTION [None]
  - GAMMA-GLUTAMYLTRANSFERASE INCREASED [None]
  - HEPATOCELLULAR DAMAGE [None]
  - HEPATOMEGALY [None]
  - HYPERLIPIDAEMIA [None]
  - LIPIDS INCREASED [None]
  - LIVER DISORDER [None]
  - METABOLIC SYNDROME [None]
  - TRANSAMINASES INCREASED [None]
  - ULTRASOUND SCAN ABNORMAL [None]
  - WEIGHT INCREASED [None]
